FAERS Safety Report 7511309-7 (Version None)
Quarter: 2011Q2

REPORT INFORMATION
  Report Type: 
  Country: None (occurrence: None)
  Receive Date: 20110531
  Receipt Date: 20110516
  Transmission Date: 20111010
  Serious: Yes (Hospitalization, Other)
  Sender: FDA-Public Use
  Company Number: US-BAYER-201038951NA

PATIENT
  Sex: Female
  Weight: 72.562 kg

DRUGS (3)
  1. MULTI-VITAMIN [Concomitant]
     Dosage: 1 UNK, QOD
  2. YASMIN [Suspect]
     Indication: PRODUCT USED FOR UNKNOWN INDICATION
     Dosage: UNK
     Dates: start: 20060101, end: 20080101
  3. TAPAZOLE [Concomitant]
     Indication: HYPOTHYROIDISM

REACTIONS (3)
  - CHOLELITHIASIS [None]
  - GALLBLADDER NON-FUNCTIONING [None]
  - CHOLECYSTITIS ACUTE [None]
